FAERS Safety Report 21914712 (Version 1)
Quarter: 2023Q1

REPORT INFORMATION
  Report Type: Other
  Country: US (occurrence: None)
  Receive Date: 20230126
  Receipt Date: 20230126
  Transmission Date: 20230418
  Serious: Yes (Hospitalization)
  Sender: FDA-Public Use
  Company Number: US-ROCHE-3269983

PATIENT
  Age: 76 Year
  Sex: Male

DRUGS (14)
  1. MYCOPHENOLATE MOFETIL [Suspect]
     Active Substance: MYCOPHENOLATE MOFETIL
     Indication: Prophylaxis against transplant rejection
     Route: 065
  2. TACROLIMUS [Suspect]
     Active Substance: TACROLIMUS
     Indication: Prophylaxis against transplant rejection
     Route: 065
  3. TOZINAMERAN [Concomitant]
     Active Substance: TOZINAMERAN
     Indication: COVID-19 prophylaxis
  4. BEBTELOVIMAB [Concomitant]
     Active Substance: BEBTELOVIMAB
  5. ASPIRIN [Concomitant]
     Active Substance: ASPIRIN
  6. LISINOPRIL [Concomitant]
     Active Substance: LISINOPRIL
  7. ATORVASTATIN [Concomitant]
     Active Substance: ATORVASTATIN
  8. ICOSAPENT ETHYL [Concomitant]
     Active Substance: ICOSAPENT ETHYL
  9. OMEPRAZOLE [Concomitant]
     Active Substance: OMEPRAZOLE
  10. FAMOTIDINE [Concomitant]
     Active Substance: FAMOTIDINE
  11. SEMAGLUTIDE [Concomitant]
     Active Substance: SEMAGLUTIDE
  12. INSULIN NOS [Concomitant]
     Active Substance: INSULIN NOS
  13. RITONAVIR [Concomitant]
     Active Substance: RITONAVIR
  14. ATORVASTATIN [Concomitant]
     Active Substance: ATORVASTATIN

REACTIONS (2)
  - Acute kidney injury [Recovered/Resolved]
  - COVID-19 [Recovered/Resolved]
